FAERS Safety Report 6337190-X (Version None)
Quarter: 2009Q3

REPORT INFORMATION
  Report Type: 
  Country: None (occurrence: None)
  Receive Date: 20090831
  Receipt Date: 20090827
  Transmission Date: 20100115
  Serious: Yes (Death, Life-Threatening, Other)
  Sender: FDA-Public Use
  Company Number: 2007SP013533

PATIENT
  Age: 71 Year
  Sex: Male
  Weight: 52 kg

DRUGS (11)
  1. TEMODAL [Suspect]
     Indication: OLIGODENDROGLIOMA
     Dosage: 75 MG/M2; QD; PO
     Route: 048
     Dates: start: 20070313, end: 20070412
  2. BAKTAR [Concomitant]
  3. TAKEPRON OD [Concomitant]
  4. AMLODIPINE [Concomitant]
  5. DIOVAN [Concomitant]
  6. ASPIRIN [Concomitant]
  7. URSO 250 [Concomitant]
  8. PREDNISOLONE [Concomitant]
  9. AZULFIDINE [Concomitant]
  10. PHENYTOIN [Concomitant]
  11. NEUTROGIN [Concomitant]

REACTIONS (7)
  - ACTIVITIES OF DAILY LIVING IMPAIRED [None]
  - DEPRESSED LEVEL OF CONSCIOUSNESS [None]
  - DISEASE PROGRESSION [None]
  - LYMPHOCYTE COUNT DECREASED [None]
  - OLIGODENDROGLIOMA [None]
  - PNEUMONIA [None]
  - TUMOUR HAEMORRHAGE [None]
